FAERS Safety Report 4611923-2 (Version None)
Quarter: 2005Q2

REPORT INFORMATION
  Report Type: 
  Country: None (occurrence: None)
  Receive Date: 20050308
  Receipt Date: 20050114
  Transmission Date: 20051028
  Serious: Yes (Hospitalization)
  Sender: FDA-Public Use
  Company Number: 2005UW00729

PATIENT
  Age: 60 Year
  Sex: Female
  Weight: 53.523 kg

DRUGS (6)
  1. CRESTOR [Suspect]
     Indication: BLOOD CHOLESTEROL INCREASED
     Dosage: 40 MG PO
     Route: 048
     Dates: start: 20040101
  2. PANCREATIC ENZYMES [Concomitant]
  3. ZETIA [Concomitant]
  4. CALCIUM GLUCONATE [Concomitant]
  5. MAGNESIUM [Concomitant]
  6. NITROGLYCERIN [Concomitant]

REACTIONS (6)
  - ANXIETY [None]
  - BLOOD CREATINE PHOSPHOKINASE INCREASED [None]
  - CHEST PAIN [None]
  - DIZZINESS [None]
  - FEELING ABNORMAL [None]
  - THROAT TIGHTNESS [None]
